FAERS Safety Report 25583128 (Version 1)
Quarter: 2025Q3

REPORT INFORMATION
  Report Type: Spontaneous
  Country: US (occurrence: US)
  Receive Date: 20250721
  Receipt Date: 20250721
  Transmission Date: 20251021
  Serious: Yes (Other)
  Sender: PRINSTON PHARMACEUTICAL
  Company Number: US-PRINSTON PHARMACEUTICAL INC.-2024PRN00362

PATIENT
  Age: 77 Year
  Sex: Female
  Weight: 77.111 kg

DRUGS (8)
  1. BUPROPION HYDROCHLORIDE [Suspect]
     Active Substance: BUPROPION HYDROCHLORIDE
     Indication: Depression
     Dosage: 100 MG, 2X/DAY
     Route: 048
     Dates: start: 202303
  2. ATORVASTATIN [Concomitant]
     Active Substance: ATORVASTATIN
  3. AMLODIPINE [Concomitant]
     Active Substance: AMLODIPINE BESYLATE
  4. PROBIOTICS NOS [Concomitant]
     Active Substance: PROBIOTICS NOS
  5. LATANOPROST [Concomitant]
     Active Substance: LATANOPROST
  6. TIMOLOL [Concomitant]
     Active Substance: TIMOLOL
  7. LORATADINE [Concomitant]
     Active Substance: LORATADINE
  8. LOSARTAN [Concomitant]
     Active Substance: LOSARTAN

REACTIONS (3)
  - Urinary retention [Not Recovered/Not Resolved]
  - Constipation [Recovered/Resolved]
  - Sleep disorder [Recovering/Resolving]

NARRATIVE: CASE EVENT DATE: 20240201
